FAERS Safety Report 4489958-2 (Version None)
Quarter: 2004Q4

REPORT INFORMATION
  Report Type: 
  Country: None (occurrence: None)
  Receive Date: 20041025
  Receipt Date: 20041012
  Transmission Date: 20050328
  Serious: Yes (Hospitalization, Other)
  Sender: FDA-Public Use
  Company Number: 2004075607

PATIENT
  Age: 94 Year
  Sex: Female

DRUGS (11)
  1. ZOLOFT [Suspect]
     Indication: ILL-DEFINED DISORDER
     Dosage: 50 MG (50 MG , 1 IN 1 D), ORAL
     Route: 048
     Dates: start: 20030811, end: 20040901
  2. NEURONTIN [Suspect]
     Indication: ILL-DEFINED DISORDER
     Dosage: ORAL
     Route: 048
  3. OLANZAPINE [Suspect]
     Indication: ILL-DEFINED DISORDER
     Dosage: ORAL
     Route: 048
     Dates: start: 20030630
  4. TOLTERODINE TARTRATE [Suspect]
     Indication: ILL-DEFINED DISORDER
     Dosage: ORAL
     Route: 048
  5. ROFECOXIB [Suspect]
     Indication: ARTHRITIS
     Dates: start: 20040819
  6. ATENOLOL [Concomitant]
  7. MULTIVITAMINS (ASCORBIC ACID, ERGOCALCIFEROL, FOLIC ACID, NICOTINAMIDE [Concomitant]
  8. SENNA FRUIT (SENNA FRUIT) [Concomitant]
  9. DONEPEZIL HCL [Concomitant]
  10. ALL OTHER THERAPEUTIC PRODUCTS (ALL OTHER THERAPEUTIC PRODUCTS) [Concomitant]
  11. HEMORID FOR WOMEN CREAM (ALOE VERA, PARAFFIN, LIQUID, PHENYLEPHRINE HY [Concomitant]

REACTIONS (9)
  - ACTIVITIES OF DAILY LIVING IMPAIRED [None]
  - APHAGIA [None]
  - BLOOD PRESSURE INCREASED [None]
  - DYSPHAGIA [None]
  - DYSPNOEA [None]
  - MOBILITY DECREASED [None]
  - PULSE ABNORMAL [None]
  - UNEVALUABLE EVENT [None]
  - WEIGHT DECREASED [None]
